FAERS Safety Report 8298678-8 (Version None)
Quarter: 2012Q2

REPORT INFORMATION
  Report Type: 
  Country: None (occurrence: None)
  Receive Date: 20120417
  Receipt Date: 20120320
  Transmission Date: 20120825
  Serious: Yes (Hospitalization)
  Sender: FDA-Public Use
  Company Number: METF20120004

PATIENT
  Age: 62 Year
  Sex: Female

DRUGS (2)
  1. METFORMIN HYDROCHLORIDE [Suspect]
     Indication: TYPE 2 DIABETES MELLITUS
     Dosage: 500 MG,1 IN 1 D, ORAL
     Route: 048
  2. GLICLAZIDE (GLICLAZIDE) (GLICLAZIDE) [Concomitant]

REACTIONS (1)
  - DIARRHOEA [None]
